FAERS Safety Report 10374562 (Version 1)
Quarter: 2014Q3

REPORT INFORMATION
  Report Type: Spontaneous
  Country: US (occurrence: None)
  Receive Date: 20140808
  Receipt Date: 20140808
  Transmission Date: 20150326
  Serious: Yes (Hospitalization)
  Sender: FDA-Public Use
  Company Number: None

PATIENT
  Age: 72 Year
  Sex: Female
  Weight: 53.52 kg

DRUGS (10)
  1. VORINOSTAT [Suspect]
     Active Substance: VORINOSTAT
     Indication: HYPOPHARYNGEAL CANCER
  2. SCOPOLAMINE [Concomitant]
     Active Substance: SCOPOLAMINE
  3. CISPLATIN. [Suspect]
     Active Substance: CISPLATIN
  4. NUTRITIONAL SUPPLEMENTS (TWOCAL HN) [Concomitant]
  5. LACTOBACILLUS (ACIDOPHILUS ) [Concomitant]
  6. LOPERAMIDE [Concomitant]
     Active Substance: LOPERAMIDE
  7. FEEDING TUBES [Concomitant]
  8. LORAZEPAM. [Concomitant]
     Active Substance: LORAZEPAM
  9. MELATONIN [Concomitant]
     Active Substance: MELATONIN
  10. CITALOPRAM [Concomitant]
     Active Substance: CITALOPRAM HYDROBROMIDE

REACTIONS (9)
  - Heart rate irregular [None]
  - Tachycardia [None]
  - Atrial fibrillation [None]
  - Diarrhoea [None]
  - Dyspnoea [None]
  - Bradycardia [None]
  - Pulmonary oedema [None]
  - Sinus tachycardia [None]
  - Respiratory failure [None]
